FAERS Safety Report 20707186 (Version 3)
Quarter: 2023Q1

REPORT INFORMATION
  Report Type: Report from Study
  Country: JP (occurrence: JP)
  Receive Date: 20220413
  Receipt Date: 20230214
  Transmission Date: 20230417
  Serious: Yes (Hospitalization)
  Sender: FDA-Public Use
  Company Number: JP-MSD-2204JPN001234J

PATIENT
  Age: 50 Year
  Sex: Male
  Weight: 106 kg

DRUGS (8)
  1. MOLNUPIRAVIR [Suspect]
     Active Substance: MOLNUPIRAVIR
     Indication: COVID-19 treatment
     Dosage: 800 MILLIGRAM, QD
     Route: 048
     Dates: start: 20220317, end: 20220317
  2. MOLNUPIRAVIR [Suspect]
     Active Substance: MOLNUPIRAVIR
     Dosage: 800 MILLIGRAM, BID
     Route: 048
     Dates: start: 20220318, end: 20220321
  3. MOLNUPIRAVIR [Suspect]
     Active Substance: MOLNUPIRAVIR
     Dosage: 800 MILLIGRAM, QD
     Route: 048
     Dates: start: 20220322, end: 20220322
  4. CODEINE PHOSPHATE [Concomitant]
     Active Substance: CODEINE PHOSPHATE
     Indication: COVID-19 treatment
     Dosage: UNK
     Route: 065
  5. CALONAL [Concomitant]
     Active Substance: ACETAMINOPHEN
     Indication: COVID-19 treatment
     Dosage: UNK
     Route: 065
  6. TRANSAMIN [Concomitant]
     Active Substance: TRANEXAMIC ACID
     Indication: COVID-19 treatment
     Dosage: UNK
     Route: 065
  7. REBAMIPIDE [Concomitant]
     Active Substance: REBAMIPIDE
     Indication: COVID-19 treatment
     Dosage: UNK
     Route: 065
  8. FAMOTIDINE [Concomitant]
     Active Substance: FAMOTIDINE
     Indication: COVID-19 treatment
     Dosage: UNK
     Route: 065

REACTIONS (1)
  - Dyspnoea [Unknown]

NARRATIVE: CASE EVENT DATE: 20220323
